FAERS Safety Report 6468467-5 (Version None)
Quarter: 2009Q4

REPORT INFORMATION
  Report Type: 
  Country: None (occurrence: None)
  Receive Date: 20091202
  Receipt Date: 20091202
  Transmission Date: 20100525
  Serious: Yes (Disabling)
  Sender: FDA-Public Use
  Company Number: None

PATIENT
  Sex: Female
  Weight: 53.978 kg

DRUGS (1)
  1. ZOLOFT -  GENERIC SERTRALINE    PIZER? GREENSTONE [Suspect]
     Indication: DEPRESSION
     Dosage: 100 MG DAILY
     Dates: start: 20090407, end: 20090801

REACTIONS (10)
  - AGGRESSION [None]
  - ASTHENOPIA [None]
  - BLOOD PRESSURE FLUCTUATION [None]
  - CONFUSIONAL STATE [None]
  - IMPULSIVE BEHAVIOUR [None]
  - IRRITABILITY [None]
  - MENTAL STATUS CHANGES [None]
  - MOOD ALTERED [None]
  - PARAESTHESIA [None]
  - URINARY INCONTINENCE [None]
